FAERS Safety Report 9119156 (Version 1)
Quarter: 2013Q1

REPORT INFORMATION
  Report Type: Spontaneous
  Country: US (occurrence: US)
  Receive Date: 20130226
  Receipt Date: 20130226
  Transmission Date: 20140127
  Serious: No
  Sender: FDA-Public Use
  Company Number: US-BIOGENIDEC-2013BI017673

PATIENT
  Sex: Female

DRUGS (1)
  1. TYSABRI [Suspect]
     Indication: MULTIPLE SCLEROSIS
     Route: 042
     Dates: start: 20100508

REACTIONS (14)
  - Purulent discharge [Recovered/Resolved]
  - Skin ulcer [Not Recovered/Not Resolved]
  - Skin infection [Not Recovered/Not Resolved]
  - Hyperkeratosis [Not Recovered/Not Resolved]
  - Musculoskeletal disorder [Not Recovered/Not Resolved]
  - Feeling cold [Not Recovered/Not Resolved]
  - Pain in extremity [Not Recovered/Not Resolved]
  - Depressed mood [Not Recovered/Not Resolved]
  - Coordination abnormal [Recovered/Resolved]
  - Body height decreased [Not Recovered/Not Resolved]
  - Head injury [Recovered/Resolved]
  - Fall [Recovered/Resolved]
  - Staphylococcal skin infection [Not Recovered/Not Resolved]
  - Fatigue [Not Recovered/Not Resolved]
